FAERS Safety Report 4490315-3 (Version None)
Quarter: 2004Q4

REPORT INFORMATION
  Report Type: 
  Country: None (occurrence: None)
  Receive Date: 20041101
  Receipt Date: 20041027
  Transmission Date: 20050328
  Serious: Yes (Other)
  Sender: FDA-Public Use
  Company Number: NL-MERCK-0410NLD00036

PATIENT
  Age: 47 Year
  Sex: Female

DRUGS (3)
  1. VIOXX [Suspect]
     Indication: PAIN
     Route: 048
     Dates: start: 20010212
  2. PAROXETINE HYDROCHLORIDE [Concomitant]
     Route: 048
  3. ETHINYL ESTRADIOL AND LEVONORGESTREL [Concomitant]
     Route: 065

REACTIONS (1)
  - CEREBROVASCULAR ACCIDENT [None]
